FAERS Safety Report 16196299 (Version 6)
Quarter: 2022Q3

REPORT INFORMATION
  Report Type: Report from Study
  Country: FR (occurrence: None)
  Receive Date: 20190415
  Receipt Date: 20220708
  Transmission Date: 20221027
  Serious: Yes (Other)
  Sender: FDA-Public Use
  Company Number: FR-ROCHE-2298377

PATIENT
  Age: 62 Year
  Sex: Female
  Weight: 55 kg

DRUGS (6)
  1. ATEZOLIZUMAB [Suspect]
     Active Substance: ATEZOLIZUMAB
     Indication: Ovarian cancer
     Dosage: DATE OF MOST RECENT DOSE OF BLINDED ATEZOLIZUMAB PRIOR TO SERIOUS EVENT ONSET: 15/MAR/2019.
     Route: 041
     Dates: start: 20180514
  2. BEVACIZUMAB [Suspect]
     Active Substance: BEVACIZUMAB
     Indication: Ovarian cancer
     Dosage: DOSE OF LAST BEVACIZUMAB ADMINISTERED PRIOR TO SERIOUS EVENT ONSET: 830 MG.?DATE OF MOST RECENT DOSE
     Route: 042
     Dates: start: 20180514
  3. PACLITAXEL [Suspect]
     Active Substance: PACLITAXEL
     Indication: Ovarian cancer
     Dosage: DOSE OF LAST PACLITAXEL ADMINISTERED PRIOR TO SERIOUS EVENT ONSET: 295 MG.?DATE OF MOST RECENT DOSE
     Route: 042
     Dates: start: 20180514
  4. CARBOPLATIN [Suspect]
     Active Substance: CARBOPLATIN
     Indication: Ovarian cancer
     Dosage: DOSE OF LAST CARBOPLATIN ADMINISTERED PRIOR TO SERIOUS EVENT ONSET: 490 MG.?DATE OF MOST RECENT DOSE
     Route: 042
     Dates: start: 20180514
  5. OXAZEPAM [Concomitant]
     Active Substance: OXAZEPAM
     Indication: Mixed anxiety and depressive disorder
     Dosage: 10
  6. EFFEXOR [Concomitant]
     Active Substance: VENLAFAXINE HYDROCHLORIDE
     Indication: Mixed anxiety and depressive disorder
     Dosage: 37.5

REACTIONS (2)
  - Lichen planus [Recovered/Resolved]
  - Oral lichen planus [Recovered/Resolved]

NARRATIVE: CASE EVENT DATE: 20190325
